FAERS Safety Report 8267845-1 (Version None)
Quarter: 2012Q2

REPORT INFORMATION
  Report Type: 
  Country: None (occurrence: None)
  Receive Date: 20120405
  Receipt Date: 20120405
  Transmission Date: 20120825
  Serious: Yes (Hospitalization)
  Sender: FDA-Public Use
  Company Number: None

PATIENT
  Age: 65 Year
  Sex: Male
  Weight: 86.9 kg

DRUGS (10)
  1. MULTI-VITAMINS [Concomitant]
  2. VIT B [Concomitant]
  3. WARFARIN SODIUM [Suspect]
     Indication: CARDIOVERSION
     Dosage: 6.5MG/5MG MF/TWTHSS PO RECENT
     Route: 048
  4. VITAMIN B-12 [Concomitant]
  5. VIT D3 [Concomitant]
  6. DYRODOXINE [Concomitant]
  7. ASPIRIN [Suspect]
     Indication: CARDIOVERSION
     Dosage: 325MG BID PO RECENT
     Route: 048
  8. DIPHENHYDRAMINE HCL [Concomitant]
  9. VIT C [Concomitant]
  10. MAG OXIDE [Concomitant]

REACTIONS (6)
  - UPPER GASTROINTESTINAL HAEMORRHAGE [None]
  - INTERNATIONAL NORMALISED RATIO INCREASED [None]
  - COAGULOPATHY [None]
  - BRADYCARDIA [None]
  - GASTRIC ULCER [None]
  - DIZZINESS [None]
